FAERS Safety Report 6396379-4 (Version None)
Quarter: 2009Q4

REPORT INFORMATION
  Report Type: 
  Country: None (occurrence: None)
  Receive Date: 20091012
  Receipt Date: 20091006
  Transmission Date: 20100525
  Serious: Yes (Death, Other)
  Sender: FDA-Public Use
  Company Number: JP-JNJFOC-20090700119

PATIENT
  Sex: Female

DRUGS (3)
  1. DUROTEP MT PATCH [Suspect]
     Indication: CANCER PAIN
     Route: 062
     Dates: start: 20081201
  2. OXYCONTIN [Concomitant]
     Indication: CANCER PAIN
     Route: 048
  3. LOXONIN [Concomitant]
     Indication: ANALGESIC THERAPY
     Route: 048

REACTIONS (2)
  - ASPHYXIA [None]
  - NEOPLASM MALIGNANT [None]
